FAERS Safety Report 17437292 (Version 2)
Quarter: 2020Q2

REPORT INFORMATION
  Report Type: Spontaneous
  Country: US (occurrence: US)
  Receive Date: 20200219
  Receipt Date: 20200414
  Transmission Date: 20200713
  Serious: No
  Sender: FDA-Public Use
  Company Number: US-ASTRAZENECA-2020SE13710

PATIENT
  Age: 22550 Day
  Sex: Male
  Weight: 69.4 kg

DRUGS (6)
  1. BEVESPI AEROSPHERE [Suspect]
     Active Substance: FORMOTEROL FUMARATE\GLYCOPYRROLATE
     Indication: CHRONIC OBSTRUCTIVE PULMONARY DISEASE
     Dosage: PUFFS, TWICE DAILY INHALATIONS
     Route: 055
  2. THEOPHYLINE ER [Concomitant]
     Indication: INCREASED VISCOSITY OF UPPER RESPIRATORY SECRETION
     Route: 048
     Dates: start: 20180311
  3. IPRATROPIOUM/ ALB [Concomitant]
     Indication: DYSPNOEA
     Route: 055
  4. LONHALA MAGNAIR [Concomitant]
     Active Substance: GLYCOPYRROLATE
     Route: 055
  5. PREDNISONE. [Concomitant]
     Active Substance: PREDNISONE
     Indication: PRODUCTIVE COUGH
     Route: 048
  6. OMEPRAZOLE. [Concomitant]
     Active Substance: OMEPRAZOLE
     Indication: GASTROOESOPHAGEAL REFLUX DISEASE
     Route: 048

REACTIONS (4)
  - Dyspnoea [Unknown]
  - Cough [Unknown]
  - Device issue [Unknown]
  - Wrong technique in product usage process [Unknown]

NARRATIVE: CASE EVENT DATE: 20200124
